FAERS Safety Report 23820670 (Version 6)
Quarter: 2024Q3

REPORT INFORMATION
  Report Type: Spontaneous
  Country: CA (occurrence: CA)
  Receive Date: 20240506
  Receipt Date: 20240903
  Transmission Date: 20241016
  Serious: Yes (Other)
  Sender: PFIZER
  Company Number: CA-PFIZER INC-PV202400051309

PATIENT
  Age: 80 Year
  Sex: Male
  Weight: 71.8 kg

DRUGS (9)
  1. ZIRABEV [Suspect]
     Active Substance: BEVACIZUMAB-BVZR
     Indication: Glioblastoma
     Dosage: 710 MG (10MG/KG, EVERY 3 WEEKS)
     Dates: start: 20240430
  2. ZIRABEV [Suspect]
     Active Substance: BEVACIZUMAB-BVZR
     Dosage: 710 MG, EVERY 3 WEEKS
     Dates: start: 20240521
  3. ZIRABEV [Suspect]
     Active Substance: BEVACIZUMAB-BVZR
     Dosage: 710 MG, EVERY 3 WEEKS
     Dates: start: 20240702
  4. ZIRABEV [Suspect]
     Active Substance: BEVACIZUMAB-BVZR
     Dosage: 710 MG, EVERY 3 WEEKS
     Dates: start: 20240723
  5. ZIRABEV [Suspect]
     Active Substance: BEVACIZUMAB-BVZR
     Dosage: 710 MG, EVERY 3 WEEKS
     Route: 042
     Dates: start: 20240813
  6. ZIRABEV [Suspect]
     Active Substance: BEVACIZUMAB-BVZR
     Dosage: 700 MG EVERY 2 WEEKS
     Route: 042
     Dates: start: 20240830
  7. DEXAMETHASONE [Concomitant]
     Active Substance: DEXAMETHASONE
     Dosage: UNK
  8. DEXAMETHASONE [Concomitant]
     Active Substance: DEXAMETHASONE
     Dosage: DECREASED TO 1MG DAILY
  9. SODIUM CHLORIDE [Concomitant]
     Active Substance: SODIUM CHLORIDE
     Dosage: FLUSH
     Dates: start: 20240813, end: 20240813

REACTIONS (8)
  - Hemiparesis [Not Recovered/Not Resolved]
  - Fatigue [Unknown]
  - Somnolence [Unknown]
  - Muscular weakness [Not Recovered/Not Resolved]
  - Weight decreased [Unknown]
  - Lethargy [Unknown]
  - Abnormal behaviour [Unknown]
  - Off label use [Unknown]

NARRATIVE: CASE EVENT DATE: 20240101
